FAERS Safety Report 6473055-0 (Version None)
Quarter: 2009Q4

REPORT INFORMATION
  Report Type: 
  Country: None (occurrence: None)
  Receive Date: 20091204
  Receipt Date: 20091123
  Transmission Date: 20100525
  Serious: Yes (Other)
  Sender: FDA-Public Use
  Company Number: BR-BAYER-200924539LA

PATIENT
  Age: 23 Year
  Sex: Female

DRUGS (2)
  1. BETAFERON [Suspect]
     Indication: RELAPSING-REMITTING MULTIPLE SCLEROSIS
     Dosage: AS USED: 0.5 ML
     Route: 058
     Dates: start: 20091115
  2. CARBAMAZEPINE [Concomitant]
     Indication: EPILEPSY
     Dosage: AS USED: 200 MG  UNIT DOSE: 200 MG
     Route: 048
     Dates: start: 19940101

REACTIONS (2)
  - DEAFNESS [None]
  - TINNITUS [None]
